FAERS Safety Report 9876884 (Version 5)
Quarter: 2015Q3

REPORT INFORMATION
  Report Type: Spontaneous
  Country: US (occurrence: US)
  Receive Date: 20140206
  Receipt Date: 20150820
  Transmission Date: 20151125
  Serious: Yes (Other)
  Sender: FDA-Public Use
  Company Number: US-ACORDA-ACO_36649_2013

PATIENT
  Age: 74 Year
  Sex: Male
  Weight: 83.9 kg

DRUGS (16)
  1. AMPYRA [Suspect]
     Active Substance: DALFAMPRIDINE
     Dosage: 10 MG, BID
     Route: 048
     Dates: start: 201311
  2. VITAMIN E [Concomitant]
     Active Substance: .ALPHA.-TOCOPHEROL
     Indication: PRODUCT USED FOR UNKNOWN INDICATION
     Dosage: UNK
     Route: 065
  3. VITAMIN C [Concomitant]
     Active Substance: ASCORBIC ACID
     Indication: PRODUCT USED FOR UNKNOWN INDICATION
     Dosage: UNK
     Route: 065
  4. ASPIRIN. [Suspect]
     Active Substance: ASPIRIN
     Indication: PAIN
     Dosage: 325 MG, TID
     Route: 048
  5. GABAPENTIN. [Concomitant]
     Active Substance: GABAPENTIN
     Indication: DYSAESTHESIA
     Dosage: 600 MG, QID
     Route: 048
  6. GABAPENTIN. [Concomitant]
     Active Substance: GABAPENTIN
     Indication: PAIN
     Dosage: 300 MG, 3 TABLETS QAM, 2 TABLETS AT NOON, AND 2 TABLETS AT BEDTIME
     Route: 065
  7. ASPIRIN. [Suspect]
     Active Substance: ASPIRIN
     Dosage: 325 MG, BID
  8. CENTRUM SILVER [Concomitant]
     Active Substance: VITAMINS
     Indication: PRODUCT USED FOR UNKNOWN INDICATION
     Dosage: UNK
     Route: 065
  9. FISH OIL [Concomitant]
     Active Substance: FISH OIL
     Indication: PRODUCT USED FOR UNKNOWN INDICATION
     Dosage: 2 DF, QD
     Route: 048
  10. AMPYRA [Suspect]
     Active Substance: DALFAMPRIDINE
     Dosage: 10 MG, BID
     Route: 048
     Dates: start: 20130301, end: 201311
  11. LAMISIL [Concomitant]
     Active Substance: TERBINAFINE HYDROCHLORIDE
     Indication: PRODUCT USED FOR UNKNOWN INDICATION
     Dosage: 250 MG, QD
     Route: 048
  12. AVONEX [Suspect]
     Active Substance: INTERFERON BETA-1A
     Indication: MULTIPLE SCLEROSIS
     Dosage: 30 MG, WEEKLY
     Route: 030
     Dates: start: 20130211, end: 20130401
  13. TYSABRI [Suspect]
     Active Substance: NATALIZUMAB
     Indication: MULTIPLE SCLEROSIS
     Dosage: 300 MG, UNK
     Route: 042
     Dates: start: 20130520
  14. VITAMIN D3 [Concomitant]
     Active Substance: CHOLECALCIFEROL
     Indication: PRODUCT USED FOR UNKNOWN INDICATION
     Dosage: 10000 IU, QD
     Route: 048
  15. TYLENOL PM EXTRA STRENGTH [Concomitant]
     Active Substance: ACETAMINOPHEN\DIPHENHYDRAMINE HYDROCHLORIDE
     Indication: PRODUCT USED FOR UNKNOWN INDICATION
     Dosage: 50-1000 MG, HS
     Route: 048
  16. AMPYRA [Suspect]
     Active Substance: DALFAMPRIDINE
     Indication: GAIT DISTURBANCE
     Dosage: 10 MG, BID
     Route: 048
     Dates: start: 20121102, end: 20130626

REACTIONS (30)
  - Neurogenic bladder [Recovering/Resolving]
  - Toxicity to various agents [Unknown]
  - Action tremor [Unknown]
  - Pain [Not Recovered/Not Resolved]
  - JC virus test positive [Recovering/Resolving]
  - Speech disorder [Not Recovered/Not Resolved]
  - Peripheral vascular disorder [Unknown]
  - Movement disorder [Unknown]
  - Multiple sclerosis [Unknown]
  - Influenza [Recovered/Resolved]
  - Joint swelling [Recovering/Resolving]
  - Nerve root compression [Unknown]
  - Paraesthesia [Recovered/Resolved]
  - Asthenia [Recovering/Resolving]
  - Disorientation [Recovering/Resolving]
  - Therapeutic response unexpected [Unknown]
  - Cognitive disorder [Not Recovered/Not Resolved]
  - Insomnia [Recovering/Resolving]
  - Fine motor skill dysfunction [Not Recovered/Not Resolved]
  - Visual impairment [Unknown]
  - Fear of falling [Unknown]
  - Drug dose omission [Unknown]
  - Influenza like illness [Recovered/Resolved]
  - Dupuytren^s contracture [Not Recovered/Not Resolved]
  - Defaecation urgency [Unknown]
  - Vertebral foraminal stenosis [Unknown]
  - Abdominal pain [Recovered/Resolved]
  - Tinnitus [Recovering/Resolving]
  - Blood glucose increased [Unknown]
  - Vertebral column mass [Unknown]

NARRATIVE: CASE EVENT DATE: 201211
